FAERS Safety Report 18658449 (Version 1)
Quarter: 2020Q4

REPORT INFORMATION
  Report Type: Spontaneous
  Country: US (occurrence: US)
  Receive Date: 20201223
  Receipt Date: 20201223
  Transmission Date: 20210114
  Serious: Yes (Other)
  Sender: FDA-Public Use
  Company Number: US-TEVA-2020-US-1860876

PATIENT
  Age: 60 Year
  Sex: Female

DRUGS (5)
  1. CLONAZEPAM TEVA [Suspect]
     Active Substance: CLONAZEPAM
     Route: 065
  2. CLONAZEPAM. [Suspect]
     Active Substance: CLONAZEPAM
     Route: 065
     Dates: start: 2000
  3. CLONAZEPAM TEVA [Suspect]
     Active Substance: CLONAZEPAM
     Route: 065
  4. ALPRAZOLAM TEVA [Suspect]
     Active Substance: ALPRAZOLAM
     Route: 065
  5. ALPRAZOLAM. [Suspect]
     Active Substance: ALPRAZOLAM
     Route: 065
     Dates: start: 2000

REACTIONS (13)
  - Near death experience [Unknown]
  - Trichotillomania [Unknown]
  - Throat tightness [Unknown]
  - Drug ineffective [Unknown]
  - Major depression [Unknown]
  - Blood pressure increased [Unknown]
  - Memory impairment [Unknown]
  - Irritability [Unknown]
  - Crying [Unknown]
  - Confusional state [Unknown]
  - Anxiety [Unknown]
  - Hypoaesthesia [Unknown]
  - Panic attack [Unknown]

NARRATIVE: CASE EVENT DATE: 20201212
